FAERS Safety Report 5409793-8 (Version None)
Quarter: 2007Q3

REPORT INFORMATION
  Report Type: 
  Country: None (occurrence: None)
  Receive Date: 20070807
  Receipt Date: 20070726
  Transmission Date: 20080115
  Serious: Yes (Other)
  Sender: FDA-Public Use
  Company Number: JPI-P-001765

PATIENT
  Age: 53 Year
  Sex: Female

DRUGS (2)
  1. XYREM [Suspect]
     Indication: SLEEP APNOEA SYNDROME
     Dosage: (3.75 GM), ORAL
     Route: 048
  2. RABEPRAZOLE SODIUM [Concomitant]

REACTIONS (4)
  - CORNEAL DISORDER [None]
  - DISEASE PROGRESSION [None]
  - KERATORHEXIS [None]
  - ROSACEA [None]
